FAERS Safety Report 5949403-4 (Version None)
Quarter: 2008Q4

REPORT INFORMATION
  Report Type: 
  Country: None (occurrence: None)
  Receive Date: 20081112
  Receipt Date: 20081030
  Transmission Date: 20090506
  Serious: Yes (Other)
  Sender: FDA-Public Use
  Company Number: PHHY2008DE14519

PATIENT
  Age: 64 Year
  Sex: Male

DRUGS (2)
  1. VISKEN [Suspect]
     Indication: SUPRAVENTRICULAR EXTRASYSTOLES
     Dosage: 2.5 MG, TID
  2. VISKEN [Suspect]
     Indication: SINUS TACHYCARDIA

REACTIONS (3)
  - ARTHROPATHY [None]
  - MENTAL DISORDER [None]
  - MUSCULOSKELETAL PAIN [None]
